FAERS Safety Report 18380636 (Version 1)
Quarter: 2020Q4

REPORT INFORMATION
  Report Type: Spontaneous
  Country: US (occurrence: US)
  Receive Date: 20201009
  Receipt Date: 20201009
  Transmission Date: 20210114
  Serious: Yes (Disabling)
  Sender: FDA-Public Use
  Company Number: None

PATIENT
  Age: 76 Year
  Sex: Female
  Weight: 52.62 kg

DRUGS (10)
  1. MUPIROCIN OINT 2% [Suspect]
     Active Substance: MUPIROCIN
     Indication: RASH ERYTHEMATOUS
     Route: 061
     Dates: start: 20190402, end: 20190416
  2. VENTOLIN [Concomitant]
     Active Substance: ALBUTEROL SULFATE
  3. HYDROCORTISONE OINT 2.5% [Suspect]
     Active Substance: HYDROCORTISONE
  4. ALBUTEROL. [Concomitant]
     Active Substance: ALBUTEROL
  5. CICLOPIROX OLAMINE CR .77% [Suspect]
     Active Substance: CICLOPIROX OLAMINE
  6. ARNUITY ELLIPTA [Concomitant]
     Active Substance: FLUTICASONE FUROATE
  7. ARED^S 2 [Concomitant]
  8. BETAMETHASONE DIPROPIONATE. [Suspect]
     Active Substance: BETAMETHASONE DIPROPIONATE
  9. TRIAMCINOLONE ACETONIDE. [Suspect]
     Active Substance: TRIAMCINOLONE ACETONIDE
  10. PREDNISONE. [Concomitant]
     Active Substance: PREDNISONE

REACTIONS (8)
  - Cold sweat [None]
  - Constipation [None]
  - Discomfort [None]
  - Shock [None]
  - Application site pain [None]
  - Fear [None]
  - Weight decreased [None]
  - Loss of personal independence in daily activities [None]

NARRATIVE: CASE EVENT DATE: 20190421
